FAERS Safety Report 19482136 (Version 1)
Quarter: 2021Q2

REPORT INFORMATION
  Report Type: Spontaneous
  Country: US (occurrence: US)
  Receive Date: 20210630
  Receipt Date: 20210630
  Transmission Date: 20210717
  Serious: Yes (Disabling)
  Sender: FDA-Public Use
  Company Number: None

PATIENT
  Age: 39 Year
  Sex: Male
  Weight: 69.3 kg

DRUGS (1)
  1. OMEPREZOLE [Suspect]
     Active Substance: OMEPRAZOLE
     Indication: DYSPEPSIA
     Dates: start: 20210625, end: 20210630

REACTIONS (2)
  - Pollakiuria [None]
  - Cystitis interstitial [None]

NARRATIVE: CASE EVENT DATE: 20210630
